FAERS Safety Report 4695188-1 (Version None)
Quarter: 2005Q2

REPORT INFORMATION
  Report Type: 
  Country: None (occurrence: None)
  Receive Date: 20050614
  Receipt Date: 20050117
  Transmission Date: 20051028
  Serious: No
  Sender: FDA-Public Use
  Company Number: USA050188589

PATIENT
  Age: 75 Year
  Sex: Male

DRUGS (3)
  1. CIALIS [Suspect]
     Indication: ERECTILE DYSFUNCTION
     Dosage: 10 MG
  2. MULTI-VITAMIN [Concomitant]
  3. ASPIRIN [Concomitant]

REACTIONS (5)
  - ASTHENIA [None]
  - BLOOD PRESSURE INCREASED [None]
  - DIZZINESS [None]
  - HYPERHIDROSIS [None]
  - INNER EAR DISORDER [None]
